FAERS Safety Report 6973174-6 (Version None)
Quarter: 2010Q3

REPORT INFORMATION
  Report Type: 
  Country: None (occurrence: None)
  Receive Date: 20100824
  Receipt Date: 20100609
  Transmission Date: 20110219
  Serious: No
  Sender: FDA-Public Use
  Company Number: 309898

PATIENT
  Age: 69 Year
  Sex: Male

DRUGS (3)
  1. VICTOZA [Suspect]
     Indication: TYPE 2 DIABETES MELLITUS
     Dosage: SUBCUTANEOUS
     Route: 058
  2. ACTOS [Concomitant]
  3. METFORMIN HCL [Concomitant]

REACTIONS (4)
  - ALOPECIA [None]
  - DECREASED APPETITE [None]
  - SPERM COUNT DECREASED [None]
  - WEIGHT DECREASED [None]
